FAERS Safety Report 23938238 (Version 1)
Quarter: 2024Q2

REPORT INFORMATION
  Report Type: Spontaneous
  Country: ES (occurrence: ES)
  Receive Date: 20240604
  Receipt Date: 20240604
  Transmission Date: 20240716
  Serious: Yes (Other)
  Sender: FDA-Public Use
  Company Number: ES-ELI_LILLY_AND_COMPANY-ES202405014546

PATIENT
  Age: 60 Year
  Sex: Female

DRUGS (2)
  1. SELPERCATINIB [Suspect]
     Active Substance: SELPERCATINIB
     Indication: Non-small cell lung cancer
     Dosage: 160 MG, BID
     Route: 048
     Dates: start: 20220727
  2. SELPERCATINIB [Suspect]
     Active Substance: SELPERCATINIB
     Dosage: 120 MG, BID
     Route: 048

REACTIONS (10)
  - Pelvic fracture [Unknown]
  - Fall [Unknown]
  - Bradycardia [Unknown]
  - Hypertransaminasaemia [Unknown]
  - Periorbital oedema [Unknown]
  - Electrocardiogram QT prolonged [Unknown]
  - Thrombocytopenia [Recovered/Resolved]
  - Oedema [Unknown]
  - Diarrhoea [Unknown]
  - Pneumonia [Unknown]

NARRATIVE: CASE EVENT DATE: 20230201
